FAERS Safety Report 4479181-X (Version None)
Quarter: 2004Q4

REPORT INFORMATION
  Report Type: 
  Country: None (occurrence: None)
  Receive Date: 20041019
  Receipt Date: 20041019
  Transmission Date: 20050328
  Serious: Yes (Other)
  Sender: FDA-Public Use
  Company Number: None

PATIENT
  Sex: Male

DRUGS (1)
  1. PERCOCET [Suspect]
     Indication: OSTEOARTHRITIS
     Dosage: ONE Q6U PRN

REACTIONS (1)
  - RASH PRURITIC [None]
